FAERS Safety Report 21665341 (Version 2)
Quarter: 2023Q1

REPORT INFORMATION
  Report Type: Report from Study
  Country: PR (occurrence: PR)
  Receive Date: 20221201
  Receipt Date: 20230130
  Transmission Date: 20230418
  Serious: No
  Sender: FDA-Public Use
  Company Number: PR-ABBVIE-4183422

PATIENT
  Sex: Female
  Weight: 82 kg

DRUGS (21)
  1. HUMIRA [Suspect]
     Active Substance: ADALIMUMAB
     Indication: Rheumatoid arthritis
     Dosage: 40MG/0.4ML, FORM STRENGTH: 40 MG
     Route: 058
     Dates: start: 202010
  2. KLONOPIN [Concomitant]
     Active Substance: CLONAZEPAM
     Indication: Nervous system disorder
     Route: 048
     Dates: start: 2010
  3. NEURONTIN [Concomitant]
     Active Substance: GABAPENTIN
     Indication: Pain
     Route: 048
     Dates: start: 2010
  4. Fluticasone propionate/Salmeterol (Advair) [Concomitant]
     Indication: Asthma
     Route: 055
  5. Fluticasone propionate/Salmeterol (Advair) [Concomitant]
     Indication: Asthma
     Route: 055
  6. TOZINAMERAN [Concomitant]
     Active Substance: TOZINAMERAN
     Indication: COVID-19
     Dosage: 3RD DOSE, ONE IN ONCE
     Route: 030
     Dates: start: 20211027, end: 20211027
  7. TOZINAMERAN [Concomitant]
     Active Substance: TOZINAMERAN
     Indication: COVID-19
     Dosage: 2ND DOSE, ONE IN ONCE
     Route: 030
     Dates: start: 20210421, end: 20210421
  8. TOZINAMERAN [Concomitant]
     Active Substance: TOZINAMERAN
     Indication: COVID-19
     Dosage: 4TH DOSE, ONE IN ONCE
     Route: 030
     Dates: start: 20221027, end: 20221027
  9. TOZINAMERAN [Concomitant]
     Active Substance: TOZINAMERAN
     Indication: COVID-19
     Dosage: 1ST DOSE, ONE IN ONCE
     Route: 030
     Dates: start: 20210324, end: 20210324
  10. ELAVIL [Concomitant]
     Active Substance: AMITRIPTYLINE HYDROCHLORIDE
     Indication: Pain
     Dosage: MORE THAN 6 YEARS
     Route: 048
  11. METOPROLOL [Concomitant]
     Active Substance: METOPROLOL
     Indication: Hypertension
     Route: 048
     Dates: start: 2012
  12. Albuterol Sulfate (Proair HFA) [Concomitant]
     Indication: Asthma
     Route: 055
  13. Albuterol Sulfate (Proair HFA) [Concomitant]
     Indication: Asthma
     Dosage: ALBUTEROL SULFATE (PROAIR HFA)
     Route: 055
  14. LIDOCAINE [Concomitant]
     Active Substance: LIDOCAINE
     Indication: Rheumatoid arthritis
  15. LIDOCAINE [Concomitant]
     Active Substance: LIDOCAINE
     Indication: Rheumatoid arthritis
     Dosage: APPROX. 8 TO 10 YEARS
  16. LISINOPRIL [Concomitant]
     Active Substance: LISINOPRIL
     Indication: Hypertension
     Route: 048
  17. PROZAC [Concomitant]
     Active Substance: FLUOXETINE HYDROCHLORIDE
     Indication: Depression
     Route: 048
     Dates: start: 2018
  18. VITAMIN D [Concomitant]
     Active Substance: VITAMIN D NOS
     Indication: Vitamin supplementation
     Dosage: APPROX. 8 TO 10 YEARS
     Route: 048
  19. FOLIC ACID [Concomitant]
     Active Substance: FOLIC ACID
     Indication: Vitamin supplementation
     Route: 048
  20. PROTONIX [Concomitant]
     Active Substance: PANTOPRAZOLE SODIUM
     Indication: Gastric disorder
     Route: 048
     Dates: start: 2012
  21. PEPCID [Concomitant]
     Active Substance: FAMOTIDINE
     Indication: Gastric disorder
     Route: 048

REACTIONS (5)
  - Weight decreased [Recovering/Resolving]
  - Arthralgia [Recovering/Resolving]
  - Therapeutic response shortened [Unknown]
  - Incorrect dose administered [Unknown]
  - Device leakage [Unknown]

NARRATIVE: CASE EVENT DATE: 20210101
